FAERS Safety Report 5176906-5 (Version None)
Quarter: 2006Q4

REPORT INFORMATION
  Report Type: 
  Country: None (occurrence: None)
  Receive Date: 20061218
  Receipt Date: 20060816
  Transmission Date: 20070319
  Serious: Yes (Hospitalization)
  Sender: FDA-Public Use
  Company Number: PHEH2006US10517

PATIENT
  Age: 27 Year
  Sex: Female
  Weight: 57.369 kg

DRUGS (6)
  1. ZANAFLEX [Concomitant]
     Indication: MUSCLE SPASMS
     Dosage: 4 MG, BID
     Route: 048
  2. MEDROL [Concomitant]
     Indication: MUSCLE SPASMS
     Dosage: 1 UNK, UNK
     Route: 048
  3. ALEVE [Concomitant]
     Indication: MUSCLE SPASMS
     Dosage: 2 UNK, QD
     Route: 048
  4. ROBAXIN [Concomitant]
     Indication: MUSCLE SPASMS
     Dosage: 1 UNK, BID
     Route: 048
  5. FOLIC ACID [Concomitant]
  6. EXJADE [Suspect]
     Indication: SICKLE CELL ANAEMIA
     Dosage: 1000 MG, QD
     Route: 048
     Dates: start: 20060112

REACTIONS (4)
  - ASTHMATIC CRISIS [None]
  - BACK PAIN [None]
  - SICKLE CELL ANAEMIA WITH CRISIS [None]
  - WHITE BLOOD CELL COUNT INCREASED [None]
